FAERS Safety Report 10194777 (Version 1)
Quarter: 2014Q2

REPORT INFORMATION
  Report Type: Spontaneous
  Country: IE (occurrence: IE)
  Receive Date: 20140526
  Receipt Date: 20140526
  Transmission Date: 20141212
  Serious: Yes (Hospitalization)
  Sender: FDA-Public Use
  Company Number: IE-AMGEN INC.-IRLSP2014037789

PATIENT
  Age: 71 Year
  Sex: Male

DRUGS (10)
  1. NEULASTA [Suspect]
     Indication: CHRONIC LYMPHOCYTIC LEUKAEMIA
     Dosage: 6MG/0.6MLS, POST CHEMO Q3WK
     Route: 058
     Dates: start: 20140424
  2. SEPTRIN [Concomitant]
     Dosage: UNK
  3. COLCHICINE [Concomitant]
     Dosage: UNK
  4. STEMETIL                           /00013301/ [Concomitant]
     Dosage: UNK
  5. ASPIRIN [Concomitant]
     Dosage: UNK
  6. CYCLIZINE [Concomitant]
     Dosage: UNK
  7. VALTREX [Concomitant]
     Dosage: UNK
  8. PANTAFLUX [Concomitant]
     Dosage: UNK
  9. RITUXAN [Concomitant]
     Dosage: UNK
  10. BENDAMUSTINE [Concomitant]
     Dosage: UNK

REACTIONS (1)
  - Hospitalisation [Unknown]
